FAERS Safety Report 5939181-7 (Version None)
Quarter: 2008Q4

REPORT INFORMATION
  Report Type: 
  Country: None (occurrence: None)
  Receive Date: 20081103
  Receipt Date: 20081022
  Transmission Date: 20090506
  Serious: Yes (Other)
  Sender: FDA-Public Use
  Company Number: BR-PFIZER INC-2008034911

PATIENT
  Sex: Male

DRUGS (1)
  1. CELEBRA [Suspect]
     Indication: SCIATICA
     Route: 048

REACTIONS (3)
  - DYSPHONIA [None]
  - EXOSTOSIS [None]
  - THYROID NEOPLASM [None]
